FAERS Safety Report 10359506 (Version 2)
Quarter: 2014Q4

REPORT INFORMATION
  Report Type: Report from Study
  Country: US (occurrence: US)
  Receive Date: 20140804
  Receipt Date: 20141107
  Transmission Date: 20150528
  Serious: Yes (Hospitalization, Other)
  Sender: FDA-Public Use
  Company Number: US-AMGEN-USASP2014058536

PATIENT
  Age: 67 Year
  Sex: Female

DRUGS (1)
  1. ENBREL [Suspect]
     Active Substance: ETANERCEPT
     Indication: RHEUMATOID ARTHRITIS
     Dosage: 50 MG, QWK
     Route: 065
     Dates: start: 20140616

REACTIONS (10)
  - Fall [Recovered/Resolved]
  - Back disorder [Not Recovered/Not Resolved]
  - Abasia [Not Recovered/Not Resolved]
  - Rheumatoid arthritis [Unknown]
  - Gait disturbance [Not Recovered/Not Resolved]
  - Weight increased [Not Recovered/Not Resolved]
  - Hypoaesthesia [Not Recovered/Not Resolved]
  - Infection [Recovered/Resolved]
  - Staphylococcal infection [Recovered/Resolved]
  - Scoliosis [Recovered/Resolved]

NARRATIVE: CASE EVENT DATE: 2014
